FAERS Safety Report 7326500-2 (Version None)
Quarter: 2011Q1

REPORT INFORMATION
  Report Type: 
  Country: None (occurrence: None)
  Receive Date: 20110302
  Receipt Date: 20110218
  Transmission Date: 20110831
  Serious: Yes (Other)
  Sender: FDA-Public Use
  Company Number: JP-AMGEN LTD.-JPNCT2010000405

PATIENT
  Age: 64 Year
  Sex: Male
  Weight: 75 kg

DRUGS (11)
  1. MIYA-BM [Concomitant]
     Dosage: UNK
     Route: 048
  2. KENALOG [Concomitant]
     Dosage: UNK
     Route: 048
  3. GRAN [Concomitant]
     Dosage: UNK
     Route: 042
  4. CALCIUM LEVOFOLINATE [Suspect]
     Indication: COLORECTAL CANCER
     Dosage: 100 MG/M2, Q2WK
     Route: 041
     Dates: start: 20100628, end: 20101209
  5. MYSER                              /00115501/ [Concomitant]
     Dosage: UNK
     Route: 062
  6. BIO THREE                          /01068501/ [Concomitant]
     Dosage: UNK
     Route: 048
  7. IRINOTECAN HCL [Suspect]
     Indication: COLORECTAL CANCER
     Dosage: 150 MG/M2, Q2WK
     Route: 041
     Dates: start: 20100628, end: 20101209
  8. FLUOROURACIL [Suspect]
     Indication: COLORECTAL CANCER
     Dosage: 400 MG/M2, Q2WK
     Route: 040
     Dates: start: 20100628, end: 20101209
  9. LOCOID                             /00028601/ [Concomitant]
     Dosage: UNK
     Route: 062
  10. PANITUMUMAB [Suspect]
     Indication: COLORECTAL CANCER
     Dosage: 6 MG/KG, Q2WK
     Route: 041
     Dates: start: 20100628, end: 20101209
  11. LOPEMIN [Concomitant]
     Dosage: UNK
     Route: 048

REACTIONS (7)
  - NEUTROPHIL COUNT DECREASED [None]
  - NEOPLASM MALIGNANT [None]
  - FEBRILE NEUTROPENIA [None]
  - RECTAL CANCER METASTATIC [None]
  - STOMATITIS [None]
  - DERMATITIS ACNEIFORM [None]
  - WHITE BLOOD CELL COUNT DECREASED [None]
